FAERS Safety Report 8991321 (Version 1)
Quarter: 2012Q4

REPORT INFORMATION
  Report Type: 
  Country: US (occurrence: US)
  Receive Date: 20121230
  Receipt Date: 20121230
  Transmission Date: 20130627
  Serious: Yes (Other)
  Sender: FDA-Public Use
  Company Number: US-BRISTOL-MYERS SQUIBB COMPANY-17227463

PATIENT
  Age: 4 None
  Sex: Female

DRUGS (3)
  1. REYATAZ [Suspect]
  2. TRUVADA [Interacting]
  3. NORVASC [Interacting]
     Indication: HYPERTENSION

REACTIONS (4)
  - Swelling face [Not Recovered/Not Resolved]
  - Rash [Not Recovered/Not Resolved]
  - Muscular weakness [Unknown]
  - Drug interaction [Unknown]
